FAERS Safety Report 13852411 (Version 3)
Quarter: 2017Q3

REPORT INFORMATION
  Report Type: Spontaneous
  Country: US (occurrence: US)
  Receive Date: 20170810
  Receipt Date: 20170930
  Transmission Date: 20171127
  Serious: Yes (Other)
  Sender: FDA-Public Use
  Company Number: US-AMGEN-USASP2017118327

PATIENT
  Age: 66 Year
  Sex: Female
  Weight: 76.19 kg

DRUGS (13)
  1. ENBREL [Suspect]
     Active Substance: ETANERCEPT
     Indication: RHEUMATOID ARTHRITIS
     Dosage: 50 MG, QWK
     Route: 058
     Dates: end: 20170712
  2. MTX [Concomitant]
     Active Substance: METHOTREXATE SODIUM
     Dosage: 7 DF, QWK
     Route: 065
  3. PLAQUENIL [Concomitant]
     Active Substance: HYDROXYCHLOROQUINE SULFATE
     Indication: RHEUMATOID ARTHRITIS
     Dosage: UNK
     Route: 065
  4. VITAMIN D3 [Concomitant]
     Active Substance: CHOLECALCIFEROL
     Dosage: 4000 UNIT, QD
     Route: 048
     Dates: start: 20121114
  5. FOLIC ACID. [Concomitant]
     Active Substance: FOLIC ACID
     Dosage: 1 MG, 3 TABLET EVERY MORNING
     Route: 048
     Dates: start: 20170711
  6. MOBIC [Concomitant]
     Active Substance: MELOXICAM
     Indication: RHEUMATOID ARTHRITIS
     Dosage: UNK
     Route: 065
  7. MTX [Concomitant]
     Active Substance: METHOTREXATE SODIUM
     Indication: RHEUMATOID ARTHRITIS
     Dosage: 6 DF, QWK
     Route: 065
  8. PREDNISONE. [Concomitant]
     Active Substance: PREDNISONE
     Dosage: UNK
     Route: 065
  9. RELAFEN [Concomitant]
     Active Substance: NABUMETONE
     Indication: RHEUMATOID ARTHRITIS
     Dosage: UNK
     Route: 065
  10. CALCIUM 600+D3 [Concomitant]
     Active Substance: CALCIUM CARBONATE\VITAMIN D
     Dosage: 600 MG, BID
     Route: 065
     Dates: start: 20121114
  11. CALCIUM [Concomitant]
     Active Substance: CALCIUM
     Dosage: 200 UNIT, 2 TIMES/WK
     Route: 048
     Dates: start: 20131106
  12. SULINDAC. [Concomitant]
     Active Substance: SULINDAC
     Indication: RHEUMATOID ARTHRITIS
     Dosage: UNK
     Route: 065
  13. SULFASALAZINE. [Concomitant]
     Active Substance: SULFASALAZINE
     Indication: RHEUMATOID ARTHRITIS
     Dosage: 1000 MG, BID
     Route: 065
     Dates: start: 20170711

REACTIONS (13)
  - Breast cancer [Unknown]
  - Cough [Unknown]
  - Osteopenia [Unknown]
  - Bursitis [Unknown]
  - Osteoarthritis [Unknown]
  - Weight increased [Unknown]
  - Dry mouth [Unknown]
  - Rheumatoid arthritis [Not Recovered/Not Resolved]
  - Foot deformity [Unknown]
  - Dizziness [Unknown]
  - Muscular weakness [Unknown]
  - Memory impairment [Unknown]
  - Ligament injury [Unknown]

NARRATIVE: CASE EVENT DATE: 20121114
